FAERS Safety Report 18305120 (Version 1)
Quarter: 2020Q3

REPORT INFORMATION
  Report Type: Spontaneous
  Country: DK (occurrence: DK)
  Receive Date: 20200924
  Receipt Date: 20200924
  Transmission Date: 20201103
  Serious: Yes (Life-Threatening)
  Sender: FDA-Public Use
  Company Number: NVSC2020DK259230

PATIENT
  Age: 23 Year
  Sex: Male

DRUGS (4)
  1. ENSTILAR [Concomitant]
     Active Substance: BETAMETHASONE DIPROPIONATE\CALCIPOTRIENE HYDRATE
     Indication: PSORIASIS
     Dosage: 1 DF, QD
     Route: 003
     Dates: start: 20190104
  2. HYRIMOZ [Suspect]
     Active Substance: ADALIMUMAB-ADAZ
     Dosage: UNK
     Route: 065
  3. HYRIMOZ [Suspect]
     Active Substance: ADALIMUMAB-ADAZ
     Indication: PSORIASIS
     Dosage: 40 MG, BIW (ADITIONNAL BATCH NUMBER JX8004, KG8492: JX8004, KG8492)
     Route: 058
     Dates: start: 201910, end: 202009
  4. DERMOVAT [Concomitant]
     Active Substance: CLOBETASOL
     Indication: PSORIASIS
     Dosage: 1 DF, QD
     Route: 003
     Dates: start: 20190104

REACTIONS (4)
  - Night sweats [Not Recovered/Not Resolved]
  - Weight decreased [Not Recovered/Not Resolved]
  - Neoplasm malignant [Not Recovered/Not Resolved]
  - Pyrexia [Not Recovered/Not Resolved]

NARRATIVE: CASE EVENT DATE: 2020
